FAERS Safety Report 6976853-X (Version None)
Quarter: 2010Q3

REPORT INFORMATION
  Report Type: 
  Country: None (occurrence: None)
  Receive Date: 20100910
  Receipt Date: 20100903
  Transmission Date: 20110219
  Serious: Yes (Other)
  Sender: FDA-Public Use
  Company Number: A0880429A

PATIENT
  Sex: Female
  Weight: 70 kg

DRUGS (4)
  1. FLIXOTIDE [Suspect]
     Indication: ASTHMA
     Dosage: 2PUFF PER DAY
     Route: 065
     Dates: start: 20070101
  2. ALLEGRA [Concomitant]
     Indication: ASTHMATIC CRISIS
     Dosage: 1TAB PER DAY
     Dates: start: 20010101, end: 20100101
  3. BUDECORT [Concomitant]
     Route: 045
     Dates: start: 20010101
  4. AMOXICILLIN [Concomitant]
     Dosage: 1TAB AS REQUIRED
     Dates: start: 20010101, end: 20100101

REACTIONS (1)
  - ASTHMATIC CRISIS [None]
